FAERS Safety Report 5828656-7 (Version None)
Quarter: 2008Q3

REPORT INFORMATION
  Report Type: 
  Country: None (occurrence: None)
  Receive Date: 20080731
  Receipt Date: 20080725
  Transmission Date: 20090109
  Serious: Yes (Hospitalization)
  Sender: FDA-Public Use
  Company Number: B0530692A

PATIENT
  Age: 29 Year
  Sex: Female

DRUGS (12)
  1. PAROXETINE HCL [Suspect]
     Dosage: 20MG PER DAY
     Route: 048
     Dates: start: 20080118, end: 20080708
  2. NEXIUM [Concomitant]
     Route: 065
  3. CELLCEPT [Concomitant]
     Route: 065
  4. PREVISCAN [Concomitant]
     Route: 065
     Dates: end: 20080701
  5. COZAAR [Concomitant]
     Route: 065
  6. PLAVIX [Concomitant]
     Route: 065
  7. PRAVASTATIN [Concomitant]
     Route: 065
  8. CORTANCYL [Concomitant]
     Dosage: 10MG PER DAY
     Route: 065
  9. PLAQUENIL [Concomitant]
     Route: 065
  10. DILTIAZEM HCL [Concomitant]
     Route: 065
  11. ILOMEDINE [Concomitant]
     Route: 065
  12. CACIT D3 [Concomitant]
     Route: 065

REACTIONS (10)
  - ABNORMAL BEHAVIOUR [None]
  - AGITATION [None]
  - DELIRIUM [None]
  - DEMENTIA [None]
  - DISINHIBITION [None]
  - DISSOCIATIVE FUGUE [None]
  - MANIA [None]
  - PERSECUTORY DELUSION [None]
  - PERSONALITY DISORDER [None]
  - SEPSIS [None]
